FAERS Safety Report 24889559 (Version 1)
Quarter: 2025Q1

REPORT INFORMATION
  Report Type: Spontaneous
  Country: US (occurrence: None)
  Receive Date: 20250123
  Receipt Date: 20250123
  Transmission Date: 20250409
  Serious: Yes (Hospitalization)
  Sender: FDA-CTU
  Company Number: None

PATIENT
  Age: 76 Year
  Sex: Male

DRUGS (1)
  1. TAMSULOSIN HYDROCHLORIDE [Suspect]
     Active Substance: TAMSULOSIN HYDROCHLORIDE
     Indication: Hypertension
     Dates: start: 20240531, end: 20241224

REACTIONS (3)
  - Orthostatic hypotension [None]
  - Syncope [None]
  - Supraventricular extrasystoles [None]

NARRATIVE: CASE EVENT DATE: 20241224
